FAERS Safety Report 21067448 (Version 2)
Quarter: 2022Q3

REPORT INFORMATION
  Report Type: Spontaneous
  Country: FR (occurrence: FR)
  Receive Date: 20220712
  Receipt Date: 20220725
  Transmission Date: 20221027
  Serious: Yes (Hospitalization, Other)
  Sender: FDA-Public Use
  Company Number: FR-DENTSPLY-2022SCDP000183

PATIENT
  Age: 27 Year
  Sex: Female

DRUGS (9)
  1. EPINEPHRINE BITARTRATE\LIDOCAINE HYDROCHLORIDE [Suspect]
     Active Substance: EPINEPHRINE BITARTRATE\LIDOCAINE HYDROCHLORIDE
     Indication: Epidural anaesthesia
     Dosage: 20 MILLIGRAM TOTAL (1X)
     Route: 065
     Dates: start: 20211202, end: 20211202
  2. ONDANSETRON [Suspect]
     Active Substance: ONDANSETRON
     Indication: Product used for unknown indication
     Dosage: 8 MILLIGRAM TOTAL (1X)
     Route: 042
     Dates: start: 20211202, end: 20211202
  3. DEXAMETHASONE [Suspect]
     Active Substance: DEXAMETHASONE
     Indication: Product used for unknown indication
     Dosage: UNK
     Route: 065
     Dates: start: 20211202, end: 20211202
  4. TRANEXAMIC ACID [Suspect]
     Active Substance: TRANEXAMIC ACID
     Indication: Postpartum haemorrhage
     Dosage: 1 GRAM TOTAL (0,5 G / 5 ML INTRAVENOUS (IV) INJECTABLE SOLUTION
     Route: 042
     Dates: start: 20211202, end: 20211202
  5. CARBETOCIN [Suspect]
     Active Substance: CARBETOCIN
     Indication: Postpartum haemorrhage
     Dosage: 1 DOSAGE FORM TOTAL (100 MCG/ML INJECTABLE SOLUTION) (1X)
     Route: 065
     Dates: start: 20211202, end: 20211202
  6. KETAMINE [Suspect]
     Active Substance: KETAMINE
     Indication: Epidural anaesthesia
     Dosage: 20 MILLIGRAM TOTAL (1X)
     Route: 042
     Dates: start: 20211202, end: 20211202
  7. CEFAZOLIN [Suspect]
     Active Substance: CEFAZOLIN
     Indication: Prophylaxis
     Dosage: 2 GRAM TOTAL (1X)
     Route: 042
     Dates: start: 20211202, end: 20211202
  8. LOVENOX [Concomitant]
     Active Substance: ENOXAPARIN SODIUM
     Indication: Thrombosis
     Dosage: 6000 INTERNATIONAL UNIT PER 12 HOUR^S (BID)
     Dates: start: 202110, end: 20211201
  9. FOLIC ACID [Concomitant]
     Active Substance: FOLIC ACID
     Indication: Product used for unknown indication
     Dosage: UNK

REACTIONS (3)
  - Rash [Recovered/Resolved]
  - Bradycardia [Recovered/Resolved]
  - Generalised tonic-clonic seizure [Recovered/Resolved]

NARRATIVE: CASE EVENT DATE: 20211202
